FAERS Safety Report 17795777 (Version 1)
Quarter: 2020Q2

REPORT INFORMATION
  Report Type: Report from Study
  Country: US (occurrence: US)
  Receive Date: 20200516
  Receipt Date: 20200516
  Transmission Date: 20200714
  Serious: Yes (Other)
  Sender: FDA-Public Use
  Company Number: US-TEVA-2020-US-1236822

PATIENT
  Age: 44 Year
  Sex: Female

DRUGS (2)
  1. MYCOPHENOLATE MOFETIL. [Suspect]
     Active Substance: MYCOPHENOLATE MOFETIL
     Indication: PEMPHIGOID
     Route: 065
  2. RITUXIMAB. [Suspect]
     Active Substance: RITUXIMAB
     Indication: PEMPHIGOID
     Dosage: 1000 MILLIGRAM DAILY; RECEIVED 2 CYCLES OF RITUXIMAB 1000MG ON DAYS 1 AND 15 (RHEUMATOID ARTHRITIS D
     Route: 065

REACTIONS (1)
  - Cholecystitis acute [Unknown]
